FAERS Safety Report 4546906-4 (Version None)
Quarter: 2005Q1

REPORT INFORMATION
  Report Type: 
  Country: None (occurrence: None)
  Receive Date: 20050105
  Receipt Date: 20041217
  Transmission Date: 20050727
  Serious: Yes (Death)
  Sender: FDA-Public Use
  Company Number: JP_041004844

PATIENT
  Age: 78 Year
  Sex: Male

DRUGS (4)
  1. VANCOMYCIN [Suspect]
     Indication: CATHETER RELATED INFECTION
     Dosage: 1000 MG/3 DAY
     Route: 042
     Dates: start: 20031101, end: 20031212
  2. VANCOMYCIN [Suspect]
     Indication: STAPHYLOCOCCAL INFECTION
     Dosage: 1000 MG/3 DAY
     Route: 042
     Dates: start: 20031101, end: 20031212
  3. FUNGIZONE [Concomitant]
  4. LASIX [Concomitant]

REACTIONS (7)
  - BLOOD PRESSURE DECREASED [None]
  - CHOLANGITIS [None]
  - CHOLECYSTITIS [None]
  - DEHYDRATION [None]
  - HAEMODIALYSIS [None]
  - PYREXIA [None]
  - RENAL FAILURE [None]
